FAERS Safety Report 9685903 (Version 1)
Quarter: 2013Q4

REPORT INFORMATION
  Report Type: Spontaneous
  Country: US (occurrence: US)
  Receive Date: 20131113
  Receipt Date: 20131113
  Transmission Date: 20140711
  Serious: No
  Sender: FDA-Public Use
  Company Number: US-ALLERGAN-1312904US

PATIENT
  Age: 73 Year
  Sex: Male

DRUGS (6)
  1. COMBIGAN[R] [Suspect]
     Indication: PRODUCT USED FOR UNKNOWN INDICATION
     Dosage: 2 GTT, BID
     Route: 047
     Dates: start: 201306, end: 20130819
  2. ACYCLOVIR                          /00587301/ [Concomitant]
     Indication: PLASMA CELL MYELOMA
     Dosage: UNK
  3. RITALIN [Concomitant]
     Indication: ATTENTION DEFICIT/HYPERACTIVITY DISORDER
     Dosage: UNK
  4. ADDERALL [Concomitant]
     Indication: ATTENTION DEFICIT/HYPERACTIVITY DISORDER
     Dosage: UNK
  5. LISINOPRIL [Concomitant]
     Indication: HYPERTENSION
     Dosage: UNK
  6. HCTZ [Concomitant]
     Indication: HYPERTENSION
     Dosage: UNK

REACTIONS (6)
  - Fatigue [Recovering/Resolving]
  - Fatigue [Recovering/Resolving]
  - Diplopia [Recovering/Resolving]
  - Altered visual depth perception [Recovering/Resolving]
  - Impaired driving ability [Recovering/Resolving]
  - Vision blurred [Recovering/Resolving]
